FAERS Safety Report 8720244 (Version 2)
Quarter: 2012Q4

REPORT INFORMATION
  Report Type: 
  Country: IT (occurrence: IT)
  Receive Date: 20120813
  Receipt Date: 20120910
  Transmission Date: 20130627
  Serious: Yes (Hospitalization)
  Sender: FDA-Public Use
  Company Number: PHHY2012IT069289

PATIENT
  Age: 36 Year
  Sex: Male

DRUGS (3)
  1. TEGRETOL [Suspect]
     Dosage: 800 mg, daily
     Route: 048
     Dates: start: 20110628, end: 20120627
  2. DEPAKIN [Suspect]
     Indication: GASTROINTESTINAL DISORDER
     Dosage: 1000 mg, daily
     Route: 048
     Dates: start: 20110628, end: 20120627
  3. DELORAZEPAM [Suspect]
     Dosage: 30 drp, daily
     Route: 048
     Dates: start: 20110628, end: 20120627

REACTIONS (3)
  - Balance disorder [Not Recovered/Not Resolved]
  - Hypersomnia [Not Recovered/Not Resolved]
  - Asthenia [Not Recovered/Not Resolved]
